FAERS Safety Report 24782180 (Version 3)
Quarter: 2025Q1

REPORT INFORMATION
  Report Type: Report from Study
  Country: US (occurrence: US)
  Receive Date: 20241227
  Receipt Date: 20250224
  Transmission Date: 20250409
  Serious: Yes (Hospitalization, Other)
  Sender: BAYER HEALTHCARE PHARMACEUTICALS INC.
  Company Number: US-BAYER-2024A124725

PATIENT
  Age: 74 Year
  Sex: Female

DRUGS (5)
  1. ADEMPAS [Suspect]
     Active Substance: RIOCIGUAT
     Indication: Pulmonary arterial hypertension
  2. ADEMPAS [Suspect]
     Active Substance: RIOCIGUAT
     Indication: Pulmonary arterial hypertension
     Dosage: 2.5 MG, TID
     Route: 048
     Dates: start: 202408
  3. TADALAFIL [Concomitant]
     Active Substance: TADALAFIL
  4. AMBRISENTAN [Concomitant]
     Active Substance: AMBRISENTAN
  5. LETAIRIS [Concomitant]
     Active Substance: AMBRISENTAN

REACTIONS (9)
  - Anaemia [Recovering/Resolving]
  - Fall [None]
  - Syncope [None]
  - Dizziness [Not Recovered/Not Resolved]
  - Hypotension [None]
  - Ankle fracture [None]
  - Fall [None]
  - Dizziness [None]
  - Hypotension [None]

NARRATIVE: CASE EVENT DATE: 20250209
